FAERS Safety Report 18789445 (Version 1)
Quarter: 2021Q1

REPORT INFORMATION
  Report Type: Spontaneous
  Country: SE (occurrence: SE)
  Receive Date: 20210126
  Receipt Date: 20210126
  Transmission Date: 20210419
  Serious: Yes (Other)
  Sender: FDA-Public Use
  Company Number: SE-MYLANLABS-2021M1004075

PATIENT
  Age: 47 Year
  Sex: Female

DRUGS (1)
  1. NAPROXEN MYLAN 500 MG TABLETTER [Suspect]
     Active Substance: NAPROXEN
     Indication: INFLAMMATION
     Dosage: 500 1X2
     Route: 048
     Dates: start: 20200811, end: 20200813

REACTIONS (1)
  - Eye haemorrhage [Recovered/Resolved]

NARRATIVE: CASE EVENT DATE: 20200813
